FAERS Safety Report 7543545-8 (Version None)
Quarter: 2011Q2

REPORT INFORMATION
  Report Type: 
  Country: None (occurrence: None)
  Receive Date: 20110613
  Receipt Date: 20020725
  Transmission Date: 20111010
  Serious: Yes (Death, Other)
  Sender: FDA-Public Use
  Company Number: PHBS2002AR08905

PATIENT
  Age: 79 Year
  Sex: Male

DRUGS (2)
  1. STARLIX [Suspect]
     Indication: DIABETES MELLITUS
     Route: 048
     Dates: start: 20010401
  2. LESCOL [Suspect]
     Dates: start: 20011001

REACTIONS (7)
  - INFARCTION [None]
  - GASTROINTESTINAL HAEMORRHAGE [None]
  - METAPLASIA [None]
  - ANAEMIA [None]
  - GASTRITIS [None]
  - VARICES OESOPHAGEAL [None]
  - CHEST PAIN [None]
